FAERS Safety Report 6970301-1 (Version None)
Quarter: 2010Q3

REPORT INFORMATION
  Report Type: 
  Country: None (occurrence: None)
  Receive Date: 20100908
  Receipt Date: 20100831
  Transmission Date: 20110219
  Serious: Yes (Other)
  Sender: FDA-Public Use
  Company Number: US-BAYER-200832726NA

PATIENT
  Age: 70 Year
  Sex: Female

DRUGS (11)
  1. MAGNEVIST [Suspect]
     Indication: NUCLEAR MAGNETIC RESONANCE IMAGING
  2. MAGNEVIST [Suspect]
  3. MAGNEVIST [Suspect]
  4. MAGNEVIST [Suspect]
  5. MAGNEVIST [Suspect]
  6. MAGNEVIST [Suspect]
  7. MAGNEVIST [Suspect]
  8. MAGNEVIST [Suspect]
  9. MAGNEVIST [Suspect]
  10. OPTIMARK [Suspect]
     Indication: NUCLEAR MAGNETIC RESONANCE IMAGING
  11. OPTIMARK [Suspect]

REACTIONS (12)
  - ANHEDONIA [None]
  - ANXIETY [None]
  - EMOTIONAL DISTRESS [None]
  - EXFOLIATIVE RASH [None]
  - JOINT STIFFNESS [None]
  - MOBILITY DECREASED [None]
  - NEPHROGENIC SYSTEMIC FIBROSIS [None]
  - OEDEMA PERIPHERAL [None]
  - PAIN [None]
  - PAIN OF SKIN [None]
  - RASH MACULAR [None]
  - SCAR [None]
